FAERS Safety Report 8804671 (Version 2)
Quarter: 2015Q1

REPORT INFORMATION
  Report Type: Report from Study
  Country: US (occurrence: US)
  Receive Date: 20120924
  Receipt Date: 20150324
  Transmission Date: 20150721
  Serious: Yes (Death)
  Sender: FDA-Public Use
  Company Number: US-ROCHE-1125936

PATIENT
  Sex: Male
  Weight: 110 kg

DRUGS (3)
  1. AVASTIN [Suspect]
     Active Substance: BEVACIZUMAB
     Indication: RENAL CANCER
     Route: 042
     Dates: start: 20050822
  2. 5-FLUOROURACIL [Concomitant]
     Active Substance: FLUOROURACIL
  3. GEMZAR [Concomitant]
     Active Substance: GEMCITABINE HYDROCHLORIDE
     Route: 065

REACTIONS (2)
  - Death [Fatal]
  - Off label use [Unknown]
